FAERS Safety Report 6038039-5 (Version None)
Quarter: 2009Q1

REPORT INFORMATION
  Report Type: 
  Country: None (occurrence: None)
  Receive Date: 20090115
  Receipt Date: 20090107
  Transmission Date: 20090719
  Serious: Yes (Hospitalization)
  Sender: FDA-Public Use
  Company Number: TW-WYE-H07601709

PATIENT

DRUGS (3)
  1. EFFEXOR XR [Suspect]
     Indication: DEPRESSION
     Dosage: OVERDOSE AMOUNT 14 CAPSULES
     Route: 048
     Dates: start: 20090104, end: 20090104
  2. IMOVANE [Suspect]
     Dosage: OVERDOSE AMOUNT 35 TABLETS
     Route: 048
     Dates: start: 20090104, end: 20090104
  3. LORAZEPAM [Suspect]
     Dosage: OVERDOSE AMOUNT 6 TABLETS
     Dates: start: 20090104, end: 20090104

REACTIONS (2)
  - DRUG WITHDRAWAL SYNDROME [None]
  - OVERDOSE [None]
